FAERS Safety Report 7372071-4 (Version None)
Quarter: 2011Q1

REPORT INFORMATION
  Report Type: 
  Country: None (occurrence: None)
  Receive Date: 20110324
  Receipt Date: 20110317
  Transmission Date: 20110831
  Serious: Yes (Death)
  Sender: FDA-Public Use
  Company Number: US-ROCHE-766913

PATIENT
  Age: 38 Year
  Sex: Female

DRUGS (5)
  1. DIAZEPAM [Suspect]
     Dosage: INGESTION AND ASPIRATION.
     Route: 048
  2. OXYCODONE [Suspect]
     Dosage: DRUG: OPIOID.
     Route: 048
  3. HYDROMORPHONE [Suspect]
     Route: 048
  4. VERAPAMIL [Suspect]
     Route: 048
  5. TOPIRAMATE [Suspect]
     Route: 048

REACTIONS (1)
  - TOXICITY TO VARIOUS AGENTS [None]
